FAERS Safety Report 24453115 (Version 2)
Quarter: 2024Q4

REPORT INFORMATION
  Report Type: Report from Study
  Country: ZA (occurrence: ZA)
  Receive Date: 20241017
  Receipt Date: 20241018
  Transmission Date: 20250115
  Serious: No
  Sender: ROCHE
  Company Number: ZA-ROCHE-3131360

PATIENT
  Age: 73 Year
  Sex: Female
  Weight: 55.3 kg

DRUGS (2)
  1. MABTHERA [Suspect]
     Active Substance: RITUXIMAB
     Indication: Rheumatoid arthritis
     Route: 041
     Dates: start: 20220801
  2. RITUXIMAB [Suspect]
     Active Substance: RITUXIMAB
     Indication: Rheumatoid arthritis
     Dosage: THERE AFTER EVERY 6 MONTHS
     Route: 041

REACTIONS (4)
  - Aspartate aminotransferase increased [Unknown]
  - Blood creatinine increased [Unknown]
  - Infection [Unknown]
  - Therapy change [Unknown]
